FAERS Safety Report 4405207-5 (Version None)
Quarter: 2004Q3

REPORT INFORMATION
  Report Type: 
  Country: None (occurrence: None)
  Receive Date: 20040722
  Receipt Date: 20040722
  Transmission Date: 20050211
  Serious: Yes (Death)
  Sender: FDA-Public Use
  Company Number: None

PATIENT
  Age: 55 Year
  Sex: Male
  Weight: 158.759 kg

DRUGS (14)
  1. VIOXX [Suspect]
     Indication: ARTHRITIS
     Dosage: 25MG QAM
     Dates: end: 20040205
  2. ZYPREXA [Concomitant]
  3. ELAVIL [Concomitant]
  4. KLONOPIN [Concomitant]
  5. DEPAKOTE [Concomitant]
  6. ACTOS [Concomitant]
  7. VASOTEC [Concomitant]
  8. LASIX [Concomitant]
  9. FLOMAX [Concomitant]
  10. ZOCOR [Concomitant]
  11. LEXAPRO [Concomitant]
  12. CEFAZOLIN [Concomitant]
  13. PROZAC [Concomitant]
  14. COLCHICINE [Concomitant]

REACTIONS (8)
  - ENCEPHALOPATHY [None]
  - GASTROINTESTINAL HAEMORRHAGE [None]
  - POST PROCEDURAL HAEMORRHAGE [None]
  - POSTOPERATIVE CONSTIPATION [None]
  - POSTOPERATIVE FEVER [None]
  - POSTOPERATIVE ILEUS [None]
  - SHOCK HAEMORRHAGIC [None]
  - UPPER GASTROINTESTINAL HAEMORRHAGE [None]
